FAERS Safety Report 7949783-4 (Version None)
Quarter: 2011Q4

REPORT INFORMATION
  Report Type: 
  Country: None (occurrence: None)
  Receive Date: 20111130
  Receipt Date: 20111128
  Transmission Date: 20120403
  Serious: Yes (Other)
  Sender: FDA-Public Use
  Company Number: ES-MERCK-1111ESP00041

PATIENT
  Age: 78 Year
  Sex: Female

DRUGS (6)
  1. ASPIRIN [Concomitant]
     Indication: CARDIOVASCULAR EVENT PROPHYLAXIS
     Route: 048
  2. OMEPRAZOLE [Concomitant]
     Indication: GASTRITIS PROPHYLAXIS
     Route: 048
  3. SINEMET CR [Suspect]
     Indication: PARKINSON'S DISEASE
     Route: 048
  4. METFORMIN HYDROCHLORIDE [Concomitant]
     Indication: DIABETES MELLITUS
     Route: 048
  5. ENALAPRIL MALEATE [Concomitant]
     Indication: HYPERTENSION
     Route: 048
  6. MEMANTINE HYDROCHLORIDE [Suspect]
     Indication: DEMENTIA WITH LEWY BODIES
     Route: 048
     Dates: start: 20110501, end: 20110701

REACTIONS (3)
  - DYSARTHRIA [None]
  - HEMIPARESIS [None]
  - SUICIDAL IDEATION [None]
